FAERS Safety Report 8560846-5 (Version None)
Quarter: 2012Q3

REPORT INFORMATION
  Report Type: 
  Country: None (occurrence: None)
  Receive Date: 20120727
  Receipt Date: 20120727
  Transmission Date: 20120928
  Serious: Yes (Hospitalization)
  Sender: FDA-Public Use
  Company Number: None

PATIENT
  Age: 87 Year
  Sex: Female
  Weight: 65 kg

DRUGS (13)
  1. MAG OX [Concomitant]
  2. SYNTHROID [Concomitant]
  3. FERROUS SULFATE TAB [Concomitant]
  4. CALCIUM + VIT D [Concomitant]
  5. WARFARIN SODIUM [Suspect]
     Indication: ATRIAL FIBRILLATION
     Dosage: 4MG DAILY PO CHRONIC
     Route: 048
  6. VITAMIN D [Concomitant]
  7. VIT C [Concomitant]
  8. FISH OIL [Concomitant]
  9. NORCO [Concomitant]
  10. TRAMADOL HCL [Concomitant]
  11. DIAZEPAM [Concomitant]
  12. MVT [Concomitant]
  13. ATENOLOL [Concomitant]

REACTIONS (5)
  - ARTERIAL HAEMORRHAGE [None]
  - SCAB [None]
  - CARDIOVASCULAR DISORDER [None]
  - HAEMORRHAGIC ANAEMIA [None]
  - DIZZINESS [None]
